FAERS Safety Report 21258322 (Version 2)
Quarter: 2022Q3

REPORT INFORMATION
  Report Type: Spontaneous
  Country: US (occurrence: US)
  Receive Date: 20220826
  Receipt Date: 20220829
  Transmission Date: 20221026
  Serious: No
  Sender: FDA-Public Use
  Company Number: US-ELI_LILLY_AND_COMPANY-US202208012750

PATIENT
  Age: 57 Year

DRUGS (4)
  1. TALTZ [Suspect]
     Active Substance: IXEKIZUMAB
     Indication: Axial spondyloarthritis
     Dosage: 80 MG, OTHER EVERY FOUR WEEKS
     Route: 065
     Dates: start: 20210815
  2. TALTZ [Suspect]
     Active Substance: IXEKIZUMAB
     Dosage: 80 MG, OTHER EVERY TWO WEEKS
     Route: 065
     Dates: start: 202112, end: 202202
  3. TALTZ [Suspect]
     Active Substance: IXEKIZUMAB
     Dosage: 80 MG, OTHER EVERY FOUR WEEKS
     Route: 065
     Dates: start: 202205
  4. COSENTYX [Concomitant]
     Active Substance: SECUKINUMAB
     Indication: Axial spondyloarthritis
     Dosage: UNK UNK, UNKNOWN
     Route: 065
     Dates: start: 202202, end: 202205

REACTIONS (3)
  - Inappropriate schedule of product administration [Recovered/Resolved]
  - Ankylosing spondylitis [Not Recovered/Not Resolved]
  - Discomfort [Unknown]

NARRATIVE: CASE EVENT DATE: 20211201
